FAERS Safety Report 9183233 (Version 1)
Quarter: 2013Q1

REPORT INFORMATION
  Report Type: Spontaneous
  Country: US (occurrence: US)
  Receive Date: 20130322
  Receipt Date: 20130322
  Transmission Date: 20140127
  Serious: Yes (Life-Threatening, Hospitalization)
  Sender: FDA-Public Use
  Company Number: US-BRISTOL-MYERS SQUIBB COMPANY-17057415

PATIENT
  Age: 54 Year
  Sex: Male

DRUGS (5)
  1. ERBITUX SOLN FOR INF [Suspect]
     Indication: GASTROOESOPHAGEAL CANCER
     Dosage: 400MG/M2
     Route: 042
  2. NORMAL SALINE [Concomitant]
  3. 5-FLUOROURACIL [Concomitant]
     Indication: GASTROOESOPHAGEAL CANCER
     Dosage: RECENT DOSE 20SEP12
  4. LEUCOVORIN [Concomitant]
     Indication: GASTROOESOPHAGEAL CANCER
  5. CISPLATIN [Concomitant]
     Indication: GASTROOESOPHAGEAL CANCER
     Dosage: RECENT DOSE 20SEP12

REACTIONS (1)
  - Anaphylactic reaction [Recovered/Resolved]
